FAERS Safety Report 24134498 (Version 2)
Quarter: 2024Q3

REPORT INFORMATION
  Report Type: Spontaneous
  Country: US (occurrence: US)
  Receive Date: 20240725
  Receipt Date: 20240806
  Transmission Date: 20241016
  Serious: Yes (Other)
  Sender: TEVA
  Company Number: US-TEVA-VS-3222777

PATIENT
  Age: 68 Year
  Sex: Male

DRUGS (4)
  1. DOCETAXEL [Suspect]
     Active Substance: DOCETAXEL\DOCETAXEL ANHYDROUS
     Indication: Prostate cancer
     Route: 050
  2. Immunoglobulin [Concomitant]
     Indication: Paraneoplastic dermatomyositis
     Route: 042
  3. HYDROXYCHLOROQUINE [Concomitant]
     Active Substance: HYDROXYCHLOROQUINE
     Indication: Paraneoplastic dermatomyositis
     Route: 065
  4. PREDNISONE [Concomitant]
     Active Substance: PREDNISONE
     Indication: Paraneoplastic dermatomyositis
     Route: 065

REACTIONS (1)
  - Rebound effect [Unknown]
